FAERS Safety Report 9936989 (Version 1)
Quarter: 2014Q1

REPORT INFORMATION
  Report Type: Spontaneous
  Country: US (occurrence: None)
  Receive Date: 20140115
  Receipt Date: 20140115
  Transmission Date: 20141002
  Serious: No
  Sender: FDA-Public Use
  Company Number: 2013US002544

PATIENT
  Age: 69 Year
  Sex: Male
  Weight: 73 kg

DRUGS (7)
  1. ICLUSIG (PONATINIB) TABLET, 45MG [Suspect]
     Indication: CHRONIC MYELOID LEUKAEMIA
     Route: 048
     Dates: start: 20130402
  2. SPIRIVA (TIOTROPIUM BROMIDE) [Concomitant]
  3. LEVAQUIN (LEVOFLOXACIN) [Concomitant]
  4. PREDNISONE (PREDNISONE) [Concomitant]
  5. ACYCLOVIR (ACYCLOVIR) [Concomitant]
  6. FLUCONAZOLE (FLUCONAZOLE) [Concomitant]
  7. LISINOPRIL (LISINOPRIL) [Concomitant]

REACTIONS (4)
  - Chromosomal mutation [None]
  - Blast cell count increased [None]
  - Drug ineffective [None]
  - Bone pain [None]
